FAERS Safety Report 5327942-7 (Version None)
Quarter: 2007Q2

REPORT INFORMATION
  Report Type: 
  Country: None (occurrence: None)
  Receive Date: 20070517
  Receipt Date: 20070511
  Transmission Date: 20071010
  Serious: Yes (Hospitalization)
  Sender: FDA-Public Use
  Company Number: DK-ABBOTT-07P-044-0366772-00

PATIENT
  Age: 25 Year
  Sex: Male

DRUGS (3)
  1. HUMIRA [Suspect]
     Indication: ANKYLOSING SPONDYLITIS
     Route: 058
     Dates: start: 20070101
  2. PARACETAMOL [Concomitant]
     Indication: PAIN
  3. BRUFEN [Concomitant]
     Indication: PAIN

REACTIONS (3)
  - JOINT SWELLING [None]
  - LOCAL SWELLING [None]
  - PYREXIA [None]
